FAERS Safety Report 13008311 (Version 2)
Quarter: 2017Q1

REPORT INFORMATION
  Report Type: Spontaneous
  Country: NL (occurrence: NL)
  Receive Date: 20161208
  Receipt Date: 20170201
  Transmission Date: 20170428
  Serious: Yes (Life-Threatening, Other)
  Sender: FDA-Public Use
  Company Number: NL-009507513-1612NLD002124

PATIENT
  Age: 60 Year
  Sex: Male

DRUGS (1)
  1. BCG LIVE [Suspect]
     Active Substance: BACILLUS CALMETTE-GUERIN SUBSTRAIN TICE LIVE ANTIGEN
     Indication: BLADDER NEOPLASM
     Dosage: UNK
     Route: 043

REACTIONS (3)
  - Infective aneurysm [Unknown]
  - Psoas abscess [Unknown]
  - Aortic aneurysm [Unknown]
